FAERS Safety Report 4694915-7 (Version None)
Quarter: 2005Q2

REPORT INFORMATION
  Report Type: 
  Country: None (occurrence: None)
  Receive Date: 20050617
  Receipt Date: 20050614
  Transmission Date: 20051028
  Serious: Yes (Death, Hospitalization)
  Sender: FDA-Public Use
  Company Number: S04-USA-05996-01

PATIENT
  Age: 91 Year
  Sex: Female

DRUGS (7)
  1. NAMENDA [Suspect]
     Indication: DEMENTIA ALZHEIMER'S TYPE
     Dates: start: 20040513, end: 20040715
  2. ARICEPT [Concomitant]
  3. COREG [Concomitant]
  4. LASIX [Concomitant]
  5. SLOW FE [Concomitant]
  6. B12 [Concomitant]
  7. IMDUR [Concomitant]

REACTIONS (9)
  - CARDIAC FAILURE CONGESTIVE [None]
  - CAROTID ARTERY ATHEROMA [None]
  - CEREBROVASCULAR ACCIDENT [None]
  - DISEASE PROGRESSION [None]
  - FALL [None]
  - GLAUCOMA [None]
  - HYPOTHYROIDISM [None]
  - RENAL FAILURE [None]
  - URINARY TRACT INFECTION [None]
